FAERS Safety Report 5368385-X (Version None)
Quarter: 2007Q2

REPORT INFORMATION
  Report Type: 
  Country: None (occurrence: None)
  Receive Date: 20070621
  Receipt Date: 20070606
  Transmission Date: 20071010
  Serious: Yes (Life-Threatening, Hospitalization)
  Sender: FDA-Public Use
  Company Number: B0286279A

PATIENT
  Age: 32 Year
  Sex: Female
  Weight: 43.9082 kg

DRUGS (8)
  1. LAMIVUDINE [Suspect]
     Indication: HIV INFECTION
     Dates: start: 20000201
  2. ABACAVIR SULFATE [Suspect]
     Indication: HIV INFECTION
     Dates: start: 20010101
  3. STAVUDINE [Suspect]
     Indication: HIV INFECTION
  4. INDINIVIR SULFATE [Suspect]
     Indication: HIV INFECTION
  5. DIDANOSINE [Suspect]
     Dates: start: 20010101
  6. TENOFOVIR DISOPROXIL FUMARATE [Suspect]
     Dates: start: 20030201
  7. CIPROFLOXACIN [Concomitant]
  8. COTRIM [Concomitant]

REACTIONS (11)
  - ABDOMINAL PAIN [None]
  - ABSCESS [None]
  - ASCITES [None]
  - BIOPSY BONE MARROW ABNORMAL [None]
  - IMMUNE RECONSTITUTION SYNDROME [None]
  - LYMPH NODE PAIN [None]
  - NECROSIS [None]
  - NO THERAPEUTIC RESPONSE [None]
  - PLEURAL EFFUSION [None]
  - SUBCUTANEOUS ABSCESS [None]
  - TUBERCULOSIS [None]
